FAERS Safety Report 5526669-6 (Version None)
Quarter: 2007Q4

REPORT INFORMATION
  Report Type: 
  Country: None (occurrence: None)
  Receive Date: 20071127
  Receipt Date: 20071120
  Transmission Date: 20080405
  Serious: Yes (Hospitalization, Other)
  Sender: FDA-Public Use
  Company Number: AU-AVENTIS-200720721GDDC

PATIENT
  Age: 61 Year
  Sex: Male

DRUGS (11)
  1. LANTUS [Suspect]
     Route: 058
     Dates: start: 20061001
  2. ACETAMINOPHEN [Concomitant]
  3. ZYDOL                              /00599202/ [Concomitant]
  4. PREDNISOLONE [Concomitant]
  5. LASIX [Concomitant]
  6. ZYLOPRIM [Concomitant]
  7. MURELAX [Concomitant]
  8. MAXOLON [Concomitant]
  9. LOSEC                              /00661201/ [Concomitant]
  10. TRAMADOL HCL [Concomitant]
  11. TESTOSTERONE [Concomitant]

REACTIONS (2)
  - HYPERGLYCAEMIA [None]
  - NEOPLASM MALIGNANT [None]
